FAERS Safety Report 15005730 (Version 1)
Quarter: 2018Q2

REPORT INFORMATION
  Report Type: Spontaneous
  Country: US (occurrence: US)
  Receive Date: 20180613
  Receipt Date: 20180613
  Transmission Date: 20180711
  Serious: No
  Sender: FDA-Public Use
  Company Number: US-MYLANLABS-2018M1038457

PATIENT
  Age: 45 Year
  Sex: Female
  Weight: 61.6 kg

DRUGS (1)
  1. ECONTRA EZ [Suspect]
     Active Substance: LEVONORGESTREL
     Indication: PRODUCT USED FOR UNKNOWN INDICATION
     Dosage: UNK

REACTIONS (4)
  - Headache [Recovered/Resolved]
  - Metrorrhagia [Recovering/Resolving]
  - Oligomenorrhoea [Recovering/Resolving]
  - Menstrual disorder [Recovering/Resolving]
